FAERS Safety Report 13274692 (Version 1)
Quarter: 2017Q1

REPORT INFORMATION
  Report Type: Spontaneous
  Country: None (occurrence: US)
  Receive Date: 20170227
  Receipt Date: 20170227
  Transmission Date: 20170428
  Serious: No
  Sender: FDA-Public Use
  Company Number: US-MATRIXX INITIATIVES, INC.-1063640

PATIENT
  Age: 79 Year
  Sex: Female

DRUGS (3)
  1. UNSPECIFIED CHOLESTEROL MEDICATIONS [Concomitant]
  2. ZICAM COLD REMEDY RAPIDMELTS [Suspect]
     Active Substance: HOMEOPATHICS\ZINC ACETATE ANHYDROUS\ZINC GLUCONATE
     Indication: NASOPHARYNGITIS
     Route: 048
     Dates: start: 20170218, end: 20170223
  3. UNSPECIFIED HYPERTENSIVES [Concomitant]

REACTIONS (1)
  - Ageusia [None]
